FAERS Safety Report 9253141 (Version 1)
Quarter: 2013Q2

REPORT INFORMATION
  Report Type: Spontaneous
  Country: GB (occurrence: GB)
  Receive Date: 20130424
  Receipt Date: 20130424
  Transmission Date: 20140414
  Serious: Yes (Other)
  Sender: FDA-Public Use
  Company Number: GB-BAUSCH-BL-2013-002207

PATIENT
  Age: 39 Year
  Sex: Female
  Weight: 61 kg

DRUGS (10)
  1. PREDNISOLONE [Suspect]
     Indication: ASTHMA
     Route: 048
     Dates: start: 20121111, end: 20121114
  2. BECLOMETASONE DIPROPIONATE [Suspect]
     Indication: ASTHMA
     Dosage: 2/ 1DAYS
     Dates: start: 20121107, end: 20130101
  3. BECLOMETASONE DIPROPIONATE [Suspect]
     Indication: PNEUMONIA VIRAL
  4. FLUTICASONE FUROATE [Concomitant]
  5. CLARITHROMYCIN [Concomitant]
  6. AMOXICILLIN/CLAVULANATE POTASSIUM [Concomitant]
  7. FERROUS FUMARATE [Concomitant]
  8. FLUCONAZOLE [Concomitant]
  9. FOLIC ACID [Concomitant]
  10. SALBUTAMOL [Concomitant]
     Dosage: 2 HOURS

REACTIONS (2)
  - Deep vein thrombosis [Recovered/Resolved with Sequelae]
  - Blood glucose increased [Recovered/Resolved]
